FAERS Safety Report 8294480-1 (Version None)
Quarter: 2012Q2

REPORT INFORMATION
  Report Type: 
  Country: None (occurrence: None)
  Receive Date: 20120418
  Receipt Date: 20120411
  Transmission Date: 20120825
  Serious: No
  Sender: FDA-Public Use
  Company Number: US-B.I. PHARMACEUTICALS,INC./RIDGEFIELD-2012-BP-06822BP

PATIENT
  Sex: Female

DRUGS (8)
  1. TRAMADOL [Concomitant]
     Indication: PAIN
  2. EMERGEN C [Concomitant]
     Indication: SUPPLEMENTATION THERAPY
  3. MULTI-VITAMIN [Concomitant]
     Indication: SUPPLEMENTATION THERAPY
  4. SPIRIVA [Suspect]
     Indication: CHRONIC OBSTRUCTIVE PULMONARY DISEASE
     Dosage: 1 MCG
     Route: 055
     Dates: start: 20080401
  5. PREMARIN [Concomitant]
  6. FLOVENT [Concomitant]
     Indication: CHRONIC OBSTRUCTIVE PULMONARY DISEASE
  7. LIDODERM [Concomitant]
     Indication: BACK PAIN
     Route: 061
  8. ZOLPIDEM [Concomitant]
     Indication: SLEEP DISORDER

REACTIONS (4)
  - URINARY TRACT INFECTION [None]
  - CATARACT [None]
  - SINUSITIS [None]
  - INCREASED UPPER AIRWAY SECRETION [None]
